APPROVED DRUG PRODUCT: AMPICILLIN SODIUM
Active Ingredient: AMPICILLIN SODIUM
Strength: EQ 1GM BASE/VIAL
Dosage Form/Route: INJECTABLE;INJECTION
Application: A062634 | Product #002
Applicant: INTERNATIONAL MEDICATION SYSTEMS LTD
Approved: Jan 9, 1987 | RLD: No | RS: No | Type: DISCN